FAERS Safety Report 8843740 (Version 2)
Quarter: 2012Q4

REPORT INFORMATION
  Report Type: 
  Country: US (occurrence: US)
  Receive Date: 20121017
  Receipt Date: 20121025
  Transmission Date: 20130627
  Serious: Yes (Other)
  Sender: FDA-Public Use
  Company Number: US-AMGEN-USASP2012065210

PATIENT
  Age: 77 Year
  Sex: Male

DRUGS (3)
  1. XGEVA [Suspect]
     Indication: PROSTATE CANCER METASTATIC
     Dosage: 120 mg, UNK
     Dates: start: 201107
  2. PREDNISONE [Concomitant]
     Dosage: 10 mg, UNK
     Dates: start: 20100720
  3. JEVTANA [Concomitant]
     Dosage: 38 mg, UNK
     Dates: start: 20100720, end: 20120228

REACTIONS (2)
  - Osteonecrosis of jaw [Unknown]
  - Tooth extraction [Unknown]
